FAERS Safety Report 7129410-9 (Version None)
Quarter: 2010Q4

REPORT INFORMATION
  Report Type: 
  Country: None (occurrence: None)
  Receive Date: 20101104
  Receipt Date: 20101029
  Transmission Date: 20110411
  Serious: Yes (Hospitalization)
  Sender: FDA-Public Use
  Company Number: WAES 0809USA00981

PATIENT
  Age: 72 Year
  Sex: Male
  Weight: 98.8842 kg

DRUGS (15)
  1. CAP VORINOSTAT 300 MG [Suspect]
     Indication: MULTIPLE MYELOMA
     Dosage: 300 MG DAILY, PO;
     Route: 048
     Dates: start: 20080422, end: 20080512
  2. CAP VORINOSTAT 300 MG [Suspect]
     Indication: MULTIPLE MYELOMA
     Dosage: 300 MG DAILY, PO;
     Route: 048
     Dates: start: 20080520, end: 20090716
  3. REVLIMID [Suspect]
     Indication: MULTIPLE MYELOMA
     Dosage: 10 MG DAILY PO,  5 MG DAILY, PO,
     Route: 048
     Dates: start: 20080422, end: 20100215
  4. DEXAMETHASONE [Suspect]
     Indication: MULTIPLE MYELOMA
     Dosage: 40 MG WKY PO
     Route: 048
     Dates: start: 20080422, end: 20091229
  5. BENICAR [Concomitant]
  6. COREG [Concomitant]
  7. PROCRIT [Concomitant]
  8. SULAR [Concomitant]
  9. TIMOPTIC [Concomitant]
  10. XALATAN [Concomitant]
  11. ZOCOR [Concomitant]
  12. ZOMETA [Concomitant]
  13. ACYCLOVIR SODIUM [Concomitant]
  14. ALLOPURINOL [Concomitant]
  15. ASPIRIN [Concomitant]

REACTIONS (22)
  - ACTIVATED PARTIAL THROMBOPLASTIN TIME PROLONGED [None]
  - ACUTE RESPIRATORY FAILURE [None]
  - BLOOD ALBUMIN DECREASED [None]
  - BLOOD BILIRUBIN INCREASED [None]
  - BLOOD CALCIUM DECREASED [None]
  - BLOOD CHLORIDE INCREASED [None]
  - BLOOD GLUCOSE INCREASED [None]
  - BLOOD LACTATE DEHYDROGENASE INCREASED [None]
  - BLOOD PHOSPHORUS DECREASED [None]
  - EPISTAXIS [None]
  - HAEMATOCRIT DECREASED [None]
  - HAEMOGLOBIN DECREASED [None]
  - HYPOXIA [None]
  - LUNG INFILTRATION [None]
  - LYMPHOCYTE PERCENTAGE DECREASED [None]
  - NASAL CONGESTION [None]
  - PLEURAL EFFUSION [None]
  - PNEUMONIA [None]
  - PROTHROMBIN TIME PROLONGED [None]
  - RED BLOOD CELL COUNT DECREASED [None]
  - SEPTIC SHOCK [None]
  - UPPER RESPIRATORY TRACT CONGESTION [None]
